FAERS Safety Report 25136577 (Version 1)
Quarter: 2025Q1

REPORT INFORMATION
  Report Type: Spontaneous
  Country: ES (occurrence: ES)
  Receive Date: 20250328
  Receipt Date: 20250328
  Transmission Date: 20250409
  Serious: Yes (Other)
  Sender: Harrow Health
  Company Number: ES-HARROW-HAR-2025-ES-00026

PATIENT
  Age: 73 Year
  Sex: Female

DRUGS (2)
  1. VERKAZIA [Suspect]
     Active Substance: CYCLOSPORINE
     Indication: Dry eye
     Route: 047
  2. Hydro Dual [Concomitant]

REACTIONS (6)
  - Eye operation [Unknown]
  - Malaise [Not Recovered/Not Resolved]
  - Off label use [Unknown]
  - Prescribed overdose [Unknown]
  - Intentional product use issue [Unknown]
  - Intentional product misuse [Unknown]
